FAERS Safety Report 23510380 (Version 1)
Quarter: 2024Q1

REPORT INFORMATION
  Report Type: Spontaneous
  Country: US (occurrence: US)
  Receive Date: 20240211
  Receipt Date: 20240211
  Transmission Date: 20240410
  Serious: Yes (Life-Threatening, Hospitalization, Other)
  Sender: FDA-Public Use
  Company Number: US-BRISTOL-MYERS SQUIBB COMPANY-2024-016897

PATIENT
  Age: 71 Year
  Sex: Female

DRUGS (1)
  1. POMALYST [Suspect]
     Active Substance: POMALIDOMIDE
     Indication: Plasma cell myeloma
     Dosage: TAKE 1 CAPSULE BY MOUTH DAILY FOR 21 DAYS ON, FOLLOWED BY 7 DAYS OFF EVERY 28 DAY CYCLE
     Route: 048

REACTIONS (19)
  - Fatigue [Recovering/Resolving]
  - Arthropathy [Recovering/Resolving]
  - Clavicle fracture [Recovering/Resolving]
  - Hormone level abnormal [Recovering/Resolving]
  - Urinary incontinence [Recovering/Resolving]
  - Acquired factor VIII deficiency [Recovering/Resolving]
  - Pneumonia viral [Recovering/Resolving]
  - Pneumonia bacterial [Recovering/Resolving]
  - Parainfluenzae virus infection [Recovering/Resolving]
  - Bronchitis [Recovering/Resolving]
  - Lower limb fracture [Recovering/Resolving]
  - Weight decreased [Recovering/Resolving]
  - COVID-19 [Recovering/Resolving]
  - Arthralgia [Recovering/Resolving]
  - Osteopenia [Recovering/Resolving]
  - Meningitis [Recovering/Resolving]
  - Encephalitis [Recovering/Resolving]
  - Pharyngitis streptococcal [Recovering/Resolving]
  - Allergy to animal [Recovering/Resolving]

NARRATIVE: CASE EVENT DATE: 20230101
